FAERS Safety Report 24608831 (Version 3)
Quarter: 2024Q4

REPORT INFORMATION
  Report Type: Spontaneous
  Country: FR (occurrence: FR)
  Receive Date: 20241112
  Receipt Date: 20241128
  Transmission Date: 20250114
  Serious: Yes (Other)
  Sender: SANOFI AVENTIS
  Company Number: FR-SA-2024SA320345

PATIENT
  Age: 44 Year
  Sex: Male

DRUGS (3)
  1. ZOLPIDEM TARTRATE [Suspect]
     Active Substance: ZOLPIDEM TARTRATE
     Indication: Insomnia
     Dosage: UNK
     Route: 048
     Dates: start: 20140630
  2. ZOLPIDEM TARTRATE [Suspect]
     Active Substance: ZOLPIDEM TARTRATE
     Dosage: 100 DF, QD
     Route: 048
  3. VALPROATE [Concomitant]
     Active Substance: VALPROIC ACID
     Dosage: UNK

REACTIONS (5)
  - Drug withdrawal convulsions [Recovered/Resolved]
  - Drug dependence [Not Recovered/Not Resolved]
  - Thinking abnormal [Unknown]
  - Weight increased [Unknown]
  - Extra dose administered [Unknown]

NARRATIVE: CASE EVENT DATE: 20241029
